FAERS Safety Report 16312569 (Version 1)
Quarter: 2019Q2

REPORT INFORMATION
  Report Type: Spontaneous
  Country: FR (occurrence: FR)
  Receive Date: 20190515
  Receipt Date: 20190515
  Transmission Date: 20190711
  Serious: Yes (Hospitalization)
  Sender: FDA-Public Use
  Company Number: FR-ROCHE-2311993

PATIENT
  Age: 47 Year
  Sex: Male
  Weight: 65 kg

DRUGS (6)
  1. CARBOPLATINE [Suspect]
     Active Substance: CARBOPLATIN
     Indication: OLIGODENDROGLIOMA
     Route: 042
     Dates: start: 20181017, end: 20190124
  2. TAMIFLU [Suspect]
     Active Substance: OSELTAMIVIR PHOSPHATE
     Indication: INFLUENZA
     Dosage: INCONNUE
     Route: 048
     Dates: start: 20190204, end: 20190209
  3. CEFOTAXIME [Suspect]
     Active Substance: CEFOTAXIME SODIUM
     Indication: LUNG DISORDER
     Dosage: INCONNUE
     Route: 042
     Dates: start: 20190204, end: 20190207
  4. AUGMENTIN [Suspect]
     Active Substance: AMOXICILLIN\CLAVULANATE POTASSIUM
     Indication: LUNG DISORDER
     Dosage: INCONNUE
     Route: 048
     Dates: start: 20190211, end: 20190217
  5. LEVOFLOXACINE [LEVOFLOXACIN] [Suspect]
     Active Substance: LEVOFLOXACIN
     Indication: LUNG DISORDER
     Dosage: INCONNUE
     Route: 048
     Dates: start: 20190207, end: 20190211
  6. ROVAMYCINE [SPIRAMYCIN] [Suspect]
     Active Substance: SPIRAMYCIN
     Indication: LUNG DISORDER
     Dosage: INCONNUE
     Route: 042
     Dates: start: 20190204, end: 20190207

REACTIONS (3)
  - Anaemia [Recovered/Resolved]
  - Thrombocytopenia [Recovered/Resolved]
  - Neutropenia [Not Recovered/Not Resolved]

NARRATIVE: CASE EVENT DATE: 20190204
